FAERS Safety Report 8077797-5 (Version None)
Quarter: 2012Q1

REPORT INFORMATION
  Report Type: 
  Country: None (occurrence: None)
  Receive Date: 20120127
  Receipt Date: 20120123
  Transmission Date: 20120608
  Serious: Yes (Other)
  Sender: FDA-Public Use
  Company Number: US-PFIZER INC-2011277280

PATIENT
  Sex: Female
  Weight: 68.9 kg

DRUGS (6)
  1. LYRICA [Suspect]
     Indication: NEUROPATHY PERIPHERAL
     Dosage: 150 MG, 1X/DAY
     Route: 048
     Dates: start: 20100801, end: 20101001
  2. LISINOPRIL [Concomitant]
     Indication: HYPERTENSION
     Dosage: UNK
  3. METFORMIN [Concomitant]
     Indication: GLUCOSE TOLERANCE IMPAIRED
     Dosage: UNK
  4. LOVAZA [Concomitant]
     Indication: BLOOD CHOLESTEROL INCREASED
     Dosage: UNK
  5. LYRICA [Suspect]
     Dosage: 150 MG, 2X/DAY
     Route: 048
     Dates: start: 20101001, end: 20111110
  6. TOPIRAMATE [Concomitant]
     Dosage: UNK

REACTIONS (14)
  - IMPAIRED DRIVING ABILITY [None]
  - DEPRESSION [None]
  - HYPERHIDROSIS [None]
  - PAIN [None]
  - OEDEMA PERIPHERAL [None]
  - INFLUENZA [None]
  - SINUS DISORDER [None]
  - EYE SWELLING [None]
  - SWELLING FACE [None]
  - OROPHARYNGEAL PAIN [None]
  - TREMOR [None]
  - CHILLS [None]
  - VISUAL IMPAIRMENT [None]
  - WITHDRAWAL SYNDROME [None]
